FAERS Safety Report 8273026-8 (Version None)
Quarter: 2012Q2

REPORT INFORMATION
  Report Type: 
  Country: None (occurrence: None)
  Receive Date: 20120409
  Receipt Date: 20120409
  Transmission Date: 20120825
  Serious: Yes (Hospitalization)
  Sender: FDA-Public Use
  Company Number: None

PATIENT
  Age: 57 Year
  Sex: Female
  Weight: 50.3946 kg

DRUGS (2)
  1. LINIFANIB [Suspect]
     Indication: COLON CANCER
     Dosage: 17.5MG DAILY ORAL
     Route: 048
     Dates: start: 20111118, end: 20111204
  2. LINIFANIB [Suspect]
     Indication: COLON CANCER
     Dosage: 12.5MG DAILY ORAL
     Route: 048
     Dates: start: 20111215, end: 20111226

REACTIONS (7)
  - COLON CANCER METASTATIC [None]
  - ABDOMINAL PAIN [None]
  - TOXICITY TO VARIOUS AGENTS [None]
  - MUSCULOSKELETAL CHEST PAIN [None]
  - VOMITING [None]
  - NEOPLASM PROGRESSION [None]
  - NAUSEA [None]
